FAERS Safety Report 10416739 (Version 1)
Quarter: 2014Q3

REPORT INFORMATION
  Report Type: Spontaneous
  Country: CA (occurrence: CA)
  Receive Date: 20140828
  Receipt Date: 20140828
  Transmission Date: 20150326
  Serious: Yes (Hospitalization)
  Sender: FDA-Public Use
  Company Number: CA-PFIZER INC-2014236923

PATIENT
  Sex: Female

DRUGS (5)
  1. SODIUM CHLORIDE 0.9% INJ 900MG/100ML USP [Suspect]
     Active Substance: SODIUM CHLORIDE
     Dosage: 0.9% INJ 900MG/100ML USP
     Route: 042
  2. COUMADIN [Suspect]
     Active Substance: WARFARIN SODIUM
  3. HEPARIN SODIUM. [Suspect]
     Active Substance: HEPARIN SODIUM
     Dosage: 50000 IU, UNK
     Route: 042
  4. ACID CONCENTRATE D12272 [Suspect]
     Active Substance: ACETIC ACID\CALCIUM CHLORIDE\DEXTROSE\MAGNESIUM CHLORIDE\POTASSIUM CHLORIDE\SODIUM CHLORIDE
  5. HEPARIN SODIUM. [Suspect]
     Active Substance: HEPARIN SODIUM
     Dosage: 10000 IU, UNK
     Route: 042

REACTIONS (2)
  - Thrombosis [Recovering/Resolving]
  - Pain [Recovering/Resolving]
